FAERS Safety Report 7637973 (Version 3)
Quarter: 2013Q2

REPORT INFORMATION
  Report Type: Spontaneous
  Country: JP (occurrence: JP)
  Receive Date: 20101022
  Receipt Date: 20130625
  Transmission Date: 20140414
  Serious: Yes (Life-Threatening, Hospitalization)
  Sender: FDA-Public Use
  Company Number: JP-EISAI INC-E2020-07768-SPO-JP

PATIENT
  Age: 84 Year
  Sex: Female

DRUGS (1)
  1. ARICEPT [Suspect]
     Indication: DEMENTIA ALZHEIMER^S TYPE
     Route: 048
     Dates: end: 20100929

REACTIONS (7)
  - Electrocardiogram QT prolonged [Recovered/Resolved]
  - Torsade de pointes [Recovered/Resolved]
  - Atrioventricular block complete [Recovered/Resolved]
  - Syncope [Recovered/Resolved]
  - Nasopharyngitis [Unknown]
  - Blood potassium decreased [Unknown]
  - Vomiting [Unknown]
